FAERS Safety Report 20101264 (Version 1)
Quarter: 2021Q4

REPORT INFORMATION
  Report Type: Spontaneous
  Country: CN (occurrence: None)
  Receive Date: 20211123
  Receipt Date: 20211123
  Transmission Date: 20220303
  Serious: Yes (Other)
  Sender: FDA-Public Use
  Company Number: CN-ROCHE-2959448

PATIENT
  Age: 63 Year
  Sex: Male

DRUGS (18)
  1. MABTHERA [Suspect]
     Active Substance: RITUXIMAB
     Indication: Mantle cell lymphoma
     Dosage: ON 24 JAN 2019, 18 FEB 2019, 14 MAR 2019 AND 12 APR 2019
     Route: 065
  2. MABTHERA [Suspect]
     Active Substance: RITUXIMAB
     Dosage: ON 20 JUL 2020 AND 20 AUG 2020
     Route: 065
  3. MABTHERA [Suspect]
     Active Substance: RITUXIMAB
     Route: 065
     Dates: start: 20210616
  4. GAZYVA [Suspect]
     Active Substance: OBINUTUZUMAB
     Indication: Mantle cell lymphoma
     Route: 042
     Dates: start: 20210923
  5. VINDESINE [Concomitant]
     Active Substance: VINDESINE
     Indication: Mantle cell lymphoma
     Dosage: ON 24 JAN 2019, 18 FEB 2019, 14 MAR 2019 AND 12 APR 2019
  6. VINDESINE [Concomitant]
     Active Substance: VINDESINE
     Dosage: ON 20 JUL 2020 AND 20 AUG 2020
  7. DOXORUBICIN HYDROCHLORIDE [Concomitant]
     Active Substance: DOXORUBICIN HYDROCHLORIDE
     Indication: Mantle cell lymphoma
     Dosage: ON 20 JUL 2020 AND 20 AUG 2020
  8. DOXORUBICIN HYDROCHLORIDE [Concomitant]
     Active Substance: DOXORUBICIN HYDROCHLORIDE
     Dosage: ON 24 JAN 2019, 18 FEB 2019, 14 MAR 2019 AND 12 APR 2019
  9. CYCLOPHOSPHAMIDE [Concomitant]
     Active Substance: CYCLOPHOSPHAMIDE
     Indication: Mantle cell lymphoma
     Dosage: ON 24 JAN 2019, 18 FEB 2019, 14 MAR 2019 AND 12 APR 2019
  10. CYCLOPHOSPHAMIDE [Concomitant]
     Active Substance: CYCLOPHOSPHAMIDE
     Dosage: ON 20 JUL 2020 AND 20 AUG 2020
  11. PREDNISONE [Concomitant]
     Active Substance: PREDNISONE
     Indication: Mantle cell lymphoma
     Dosage: ON 24 JAN 2019, 18 FEB 2019, 14 MAR 2019 AND 12 APR 2019
  12. PREDNISONE [Concomitant]
     Active Substance: PREDNISONE
     Dosage: ON 20 JUL 2020 AND 20 AUG 2020
  13. ZANUBRUTINIB [Concomitant]
     Active Substance: ZANUBRUTINIB
     Indication: Mantle cell lymphoma
     Dosage: ON 20 JUL 2020 AND 20 AUG 2020
  14. ZANUBRUTINIB [Concomitant]
     Active Substance: ZANUBRUTINIB
     Dosage: SINGLE AGENT
     Route: 048
  15. ZANUBRUTINIB [Concomitant]
     Active Substance: ZANUBRUTINIB
     Dates: start: 20210616
  16. BENDAMUSTINE [Concomitant]
     Active Substance: BENDAMUSTINE
     Indication: Mantle cell lymphoma
     Dates: start: 20210616
  17. METHOTREXATE [Concomitant]
     Active Substance: METHOTREXATE
     Indication: Mantle cell lymphoma
     Dates: start: 20210923
  18. CYTARABINE [Concomitant]
     Active Substance: CYTARABINE
     Indication: Mantle cell lymphoma
     Dates: start: 20210923

REACTIONS (6)
  - Myelosuppression [Unknown]
  - Infection [Unknown]
  - Rash [Unknown]
  - Disease recurrence [Unknown]
  - Off label use [Unknown]
  - Off label use [Unknown]
